FAERS Safety Report 4416466-7 (Version None)
Quarter: 2004Q2

REPORT INFORMATION
  Report Type: 
  Country: None (occurrence: None)
  Receive Date: 20040628
  Receipt Date: 20030701
  Transmission Date: 20050107
  Serious: Yes (Other)
  Sender: FDA-Public Use
  Company Number: 320181

PATIENT
  Age: 73 Year
  Sex: Male

DRUGS (2)
  1. CELLCEPT [Suspect]
     Dosage: 1000 MG 2 PER DAY ORAL
     Route: 048
     Dates: start: 20020219
  2. ZANTAC [Concomitant]

REACTIONS (3)
  - DIARRHOEA [None]
  - FLATULENCE [None]
  - PLATELET COUNT DECREASED [None]
